FAERS Safety Report 14597317 (Version 1)
Quarter: 2018Q1

REPORT INFORMATION
  Report Type: Report from Study
  Country: None (occurrence: ES)
  Receive Date: 20180305
  Receipt Date: 20180305
  Transmission Date: 20180509
  Serious: Yes (Other)
  Sender: FDA-Public Use
  Company Number: ES-ABBVIE-18K-144-2269981-00

PATIENT
  Age: 58 Year
  Sex: Female
  Weight: 70 kg

DRUGS (6)
  1. EUTIROX [Concomitant]
     Active Substance: LEVOTHYROXINE SODIUM
     Dosage: WEEKENDS
     Route: 048
  2. HUMIRA [Suspect]
     Active Substance: ADALIMUMAB
     Indication: RHEUMATOID ARTHRITIS
     Route: 058
     Dates: start: 20160523, end: 201704
  3. HUMIRA [Suspect]
     Active Substance: ADALIMUMAB
     Indication: RHEUMATOID ARTHRITIS
     Route: 058
     Dates: start: 201704
  4. EUTIROX [Concomitant]
     Active Substance: LEVOTHYROXINE SODIUM
     Indication: THYROID DISORDER
     Dosage: WEEKDAYS
     Route: 048
  5. LEFLUARTIL [Concomitant]
     Indication: RHEUMATOID ARTHRITIS
     Route: 048
  6. HIPERTENE [Concomitant]
     Indication: BLOOD PRESSURE MEASUREMENT
     Route: 048

REACTIONS (3)
  - Ear discomfort [Recovering/Resolving]
  - Influenza [Recovering/Resolving]
  - Deafness unilateral [Recovering/Resolving]

NARRATIVE: CASE EVENT DATE: 201712
